FAERS Safety Report 18347675 (Version 1)
Quarter: 2020Q4

REPORT INFORMATION
  Report Type: Spontaneous
  Country: US (occurrence: US)
  Receive Date: 20201006
  Receipt Date: 20201006
  Transmission Date: 20210114
  Serious: Yes (Other)
  Sender: FDA-Public Use
  Company Number: US-CELLTRION INC.-2020US028461

PATIENT

DRUGS (6)
  1. TRUXIMA [Suspect]
     Active Substance: RITUXIMAB-ABBS
     Indication: DIFFUSE LARGE B-CELL LYMPHOMA
     Dosage: UNK
     Dates: start: 20200728
  2. ALOXI [Concomitant]
     Active Substance: PALONOSETRON HYDROCHLORIDE
  3. CINVANTI [Concomitant]
     Active Substance: APREPITANT
  4. TYLENOL [Concomitant]
     Active Substance: ACETAMINOPHEN
  5. BENDEKA [Concomitant]
     Active Substance: BENDAMUSTINE HYDROCHLORIDE
  6. POLIVY [Concomitant]
     Active Substance: POLATUZUMAB VEDOTIN-PIIQ

REACTIONS (4)
  - Febrile neutropenia [Unknown]
  - COVID-19 [Unknown]
  - Anaemia [Unknown]
  - Neutropenia [Unknown]
